FAERS Safety Report 26037340 (Version 1)
Quarter: 2025Q4

REPORT INFORMATION
  Report Type: Spontaneous
  Country: AU (occurrence: AU)
  Receive Date: 20251112
  Receipt Date: 20251112
  Transmission Date: 20260117
  Serious: Yes (Other)
  Sender: GALPHARM INTERNATIONAL
  Company Number: None

PATIENT
  Age: 53 Year
  Sex: Female

DRUGS (2)
  1. IBUPROFEN [Suspect]
     Active Substance: IBUPROFEN
     Indication: Product used for unknown indication
     Dosage: 2 DOSAGE FORM, QD
     Route: 065
     Dates: start: 20250608
  2. ASPIRIN [Suspect]
     Active Substance: ASPIRIN
     Indication: Product used for unknown indication
     Dosage: 2 TABLETS THE TWO PREVIOUS NIGHTS
     Route: 065
     Dates: start: 20250609

REACTIONS (4)
  - Angioedema [Unknown]
  - Blood immunoglobulin E increased [Unknown]
  - Unresponsive to stimuli [Unknown]
  - Urticaria [Unknown]

NARRATIVE: CASE EVENT DATE: 20250611
